FAERS Safety Report 5621072-2 (Version None)
Quarter: 2008Q1

REPORT INFORMATION
  Report Type: 
  Country: None (occurrence: None)
  Receive Date: 20080208
  Receipt Date: 20080201
  Transmission Date: 20080703
  Serious: Yes (Death, Life-Threatening, Other)
  Sender: FDA-Public Use
  Company Number: ZA-PFIZER INC-2007083054

PATIENT
  Sex: Female
  Weight: 53 kg

DRUGS (13)
  1. BLINDED UK-427,857 [Suspect]
     Indication: HIV TEST POSITIVE
     Route: 048
     Dates: start: 20060330, end: 20080125
  2. AMITRIPTYLINE HCL [Concomitant]
     Route: 048
  3. DICLOFENAC [Concomitant]
     Route: 048
  4. PARACETAMOL [Concomitant]
     Route: 048
     Dates: start: 20070831, end: 20071024
  5. BACTRIM [Concomitant]
     Route: 048
  6. VITAMIN B COMPLEX CAP [Concomitant]
     Route: 048
  7. MORPHINE [Concomitant]
     Route: 048
  8. SORBITOL [Concomitant]
     Route: 048
  9. SORBITOL [Concomitant]
  10. SENNA [Concomitant]
  11. BETAMETHASONE [Concomitant]
     Route: 048
  12. METOCLOPRAMIDE [Concomitant]
     Route: 048
  13. CODEINE PHOSPHATE AND ACETAMINOPHEN [Concomitant]

REACTIONS (1)
  - LUNG ADENOCARCINOMA METASTATIC [None]
